FAERS Safety Report 10191148 (Version 1)
Quarter: 2014Q2

REPORT INFORMATION
  Report Type: Spontaneous
  Country: BR (occurrence: BR)
  Receive Date: 20140523
  Receipt Date: 20140523
  Transmission Date: 20141212
  Serious: Yes (Other)
  Sender: FDA-Public Use
  Company Number: BR-ASTRAZENECA-2014SE35017

PATIENT
  Age: 74 Year
  Sex: Female
  Weight: 72 kg

DRUGS (10)
  1. NEXIUM [Suspect]
     Indication: GASTRITIS
     Route: 048
     Dates: start: 2010
  2. NEXIUM [Suspect]
     Indication: CHRONIC GASTRITIS
     Route: 048
     Dates: start: 2010
  3. NORVASC [Suspect]
     Indication: HYPERTENSION
     Route: 048
     Dates: start: 2001, end: 2012
  4. VITAMIN D + CALCIUM [Suspect]
     Indication: VITAMIN D DEFICIENCY
     Route: 048
     Dates: start: 2014, end: 2014
  5. FELDENE [Suspect]
     Indication: BONE PAIN
     Route: 042
     Dates: end: 201404
  6. FELDENE [Suspect]
     Indication: BACK PAIN
     Route: 042
     Dates: end: 201404
  7. TRAMAL [Suspect]
     Indication: BONE PAIN
     Route: 065
     Dates: end: 201404
  8. TRAMAL [Suspect]
     Indication: BACK PAIN
     Route: 065
     Dates: end: 201404
  9. LEXOTAN [Concomitant]
     Route: 048
     Dates: start: 2012
  10. NAPRIX A [Concomitant]
     Indication: BLOOD PRESSURE FLUCTUATION
     Dosage: 5/5MG
     Route: 048
     Dates: start: 2012

REACTIONS (13)
  - Bone pain [Not Recovered/Not Resolved]
  - Back pain [Not Recovered/Not Resolved]
  - Blood pressure fluctuation [Recovering/Resolving]
  - Tachycardia [Not Recovered/Not Resolved]
  - Transient ischaemic attack [Unknown]
  - Flatulence [Not Recovered/Not Resolved]
  - Malaise [Not Recovered/Not Resolved]
  - Weight decreased [Recovering/Resolving]
  - Abdominal pain upper [Not Recovered/Not Resolved]
  - Vitamin D deficiency [Not Recovered/Not Resolved]
  - Blood glucose increased [Not Recovered/Not Resolved]
  - Helicobacter infection [Unknown]
  - Drug ineffective [Unknown]
